FAERS Safety Report 4437395-9 (Version None)
Quarter: 2004Q3

REPORT INFORMATION
  Report Type: 
  Country: None (occurrence: None)
  Receive Date: 20040726
  Receipt Date: 20040415
  Transmission Date: 20050211
  Serious: No
  Sender: FDA-Public Use
  Company Number: USA040463788

PATIENT
  Age: 78 Year
  Sex: Female
  Weight: 65 kg

DRUGS (8)
  1. FORTEO [Suspect]
     Indication: OSTEOPOROSIS
     Dosage: 20 UG/ 1 DAY
     Dates: start: 20040331, end: 20040413
  2. FOSAMAX [Concomitant]
  3. ESTROGEN NOS [Concomitant]
  4. PROVERA [Concomitant]
  5. MULTIVITAMIN [Concomitant]
  6. CALCIUM WITH VITAMIN D [Concomitant]
  7. VITAMIN E [Concomitant]
  8. ASPIRIN [Concomitant]

REACTIONS (11)
  - DECREASED APPETITE [None]
  - DIZZINESS [None]
  - DRY THROAT [None]
  - EPISTAXIS [None]
  - FEELING ABNORMAL [None]
  - FLUSHING [None]
  - HEART RATE INCREASED [None]
  - HYPERSOMNIA [None]
  - INJECTION SITE ERYTHEMA [None]
  - NAUSEA [None]
  - TREMOR [None]
